FAERS Safety Report 24093551 (Version 1)
Quarter: 2024Q3

REPORT INFORMATION
  Report Type: Spontaneous
  Country: BR (occurrence: BR)
  Receive Date: 20240715
  Receipt Date: 20240715
  Transmission Date: 20241016
  Serious: Yes (Death)
  Sender: ROCHE
  Company Number: BR-BoehringerIngelheim-2024-BI-039482

PATIENT
  Age: 60 Year
  Sex: Male

DRUGS (1)
  1. ALTEPLASE [Suspect]
     Active Substance: ALTEPLASE
     Indication: Infarction
     Dosage: TWO DOSES
     Route: 042

REACTIONS (1)
  - Death [Fatal]
